FAERS Safety Report 24546307 (Version 1)
Quarter: 2024Q4

REPORT INFORMATION
  Report Type: Spontaneous
  Country: GB (occurrence: GB)
  Receive Date: 20241024
  Receipt Date: 20241024
  Transmission Date: 20250114
  Serious: Yes (Hospitalization)
  Sender: B BRAUN
  Company Number: GB-B.Braun Medical Inc.-2163264

PATIENT
  Age: 33 Year
  Sex: Male

DRUGS (1)
  1. ACETAMINOPHEN [Suspect]
     Active Substance: ACETAMINOPHEN
     Dates: start: 20240920

REACTIONS (2)
  - Abdominal pain [Recovered/Resolved]
  - Off label use [Recovered/Resolved]
